FAERS Safety Report 23375014 (Version 1)
Quarter: 2024Q1

REPORT INFORMATION
  Report Type: Spontaneous
  Country: ES (occurrence: ES)
  Receive Date: 20240106
  Receipt Date: 20240106
  Transmission Date: 20240410
  Serious: Yes (Hospitalization, Disabling)
  Sender: FDA-Public Use
  Company Number: None

PATIENT
  Age: 77 Year
  Sex: Male
  Weight: 91.6 kg

DRUGS (1)
  1. ROSUVASTATIN [Suspect]
     Active Substance: ROSUVASTATIN
     Indication: Dyslipidaemia
     Dosage: 5 MG (1 EVERY 48 HOURS)
     Route: 048
     Dates: start: 20230306, end: 20230828

REACTIONS (1)
  - Necrotising myositis [Recovering/Resolving]

NARRATIVE: CASE EVENT DATE: 20230401
